FAERS Safety Report 10091754 (Version 1)
Quarter: 2014Q2

REPORT INFORMATION
  Report Type: Spontaneous
  Country: US (occurrence: US)
  Receive Date: 20140421
  Receipt Date: 20140421
  Transmission Date: 20141212
  Serious: No
  Sender: FDA-Public Use
  Company Number: US-PURDUE-USA-2006-0024785

PATIENT
  Sex: Female

DRUGS (3)
  1. OXYIR CAPSULES 5 MG [Suspect]
     Indication: PROCEDURAL PAIN
     Dosage: 5 MG, Q4H
  2. HYDROCODONE [Suspect]
     Indication: PRODUCT USED FOR UNKNOWN INDICATION
  3. MULTIVITAMINS, PLAIN [Concomitant]

REACTIONS (1)
  - Constipation [Unknown]
